FAERS Safety Report 8797355 (Version 1)
Quarter: 2012Q4

REPORT INFORMATION
  Report Type: 
  Country: IT (occurrence: IT)
  Receive Date: 20120919
  Receipt Date: 20120919
  Transmission Date: 20130627
  Serious: Yes (Hospitalization)
  Sender: FDA-Public Use
  Company Number: IT-ROCHE-1128633

PATIENT
  Age: 52 Year
  Sex: Male

DRUGS (2)
  1. RIVOTRIL [Suspect]
     Indication: PRODUCT USED FOR UNKNOWN INDICATION
     Route: 048
     Dates: start: 20120911, end: 20120911
  2. DELORAZEPAM [Suspect]
     Indication: PRODUCT USED FOR UNKNOWN INDICATION
     Dosage: form strength 1mg/ml
     Route: 048
     Dates: start: 20120911, end: 20120911

REACTIONS (5)
  - Bradyphrenia [Recovering/Resolving]
  - Bradykinesia [Recovering/Resolving]
  - Intentional self-injury [None]
  - Drug abuse [None]
  - Overdose [None]
